FAERS Safety Report 8882548 (Version 1)
Quarter: 2012Q4

REPORT INFORMATION
  Report Type: 
  Country: US (occurrence: US)
  Receive Date: 20121105
  Receipt Date: 20121105
  Transmission Date: 20130627
  Serious: Yes (Other)
  Sender: FDA-Public Use
  Company Number: CHPA2012US022629

PATIENT
  Age: 54 Year
  Sex: Female

DRUGS (1)
  1. MAALOX ADV MAXIMUM STRENGTH ANTACID/ANTIGAS [Suspect]
     Indication: DYSPEPSIA
     Dosage: 1 tsp, as needed

REACTIONS (4)
  - Gastric ulcer [Recovered/Resolved]
  - Disease recurrence [Not Recovered/Not Resolved]
  - Expired drug administered [Unknown]
  - Underdose [Unknown]
